FAERS Safety Report 24366710 (Version 1)
Quarter: 2024Q3

REPORT INFORMATION
  Report Type: Spontaneous
  Country: ES (occurrence: ES)
  Receive Date: 20240926
  Receipt Date: 20240926
  Transmission Date: 20241016
  Serious: Yes (Hospitalization)
  Sender: SANDOZ
  Company Number: ES-AEMPS-1571661

PATIENT
  Age: 78 Year
  Sex: Female

DRUGS (6)
  1. CIPROFLOXACIN [Suspect]
     Active Substance: CIPROFLOXACIN
     Indication: Endophthalmitis
     Dosage: 6 G, QD
     Route: 048
     Dates: start: 20240621, end: 20240701
  2. CEFTAZIDIME [Concomitant]
     Active Substance: CEFTAZIDIME
     Indication: Endophthalmitis
     Dosage: 12 G, QD
     Route: 047
     Dates: start: 20240621, end: 20240701
  3. IBUPROFEN [Concomitant]
     Active Substance: IBUPROFEN
     Indication: Endophthalmitis
     Dosage: 1.8 G, QD
     Route: 048
     Dates: start: 20240621, end: 20240701
  4. OMEPRAZOLE [Concomitant]
     Active Substance: OMEPRAZOLE
     Indication: Endophthalmitis
     Dosage: 20 MG, QD
     Route: 048
     Dates: start: 20240621, end: 20240701
  5. ACETAMINOPHEN [Concomitant]
     Active Substance: ACETAMINOPHEN
     Indication: Endophthalmitis
     Dosage: 3 G, QD
     Route: 048
     Dates: start: 20240621, end: 20240701
  6. VANCOMYCIN [Concomitant]
     Active Substance: VANCOMYCIN
     Indication: Endophthalmitis
     Dosage: 12 G, QD
     Route: 047
     Dates: start: 20240621, end: 20240701

REACTIONS (2)
  - Tubulointerstitial nephritis [Recovered/Resolved]
  - Wrong dose [Recovered/Resolved]

NARRATIVE: CASE EVENT DATE: 20240621
